FAERS Safety Report 14424253 (Version 1)
Quarter: 2018Q1

REPORT INFORMATION
  Report Type: Spontaneous
  Country: US (occurrence: US)
  Receive Date: 20180123
  Receipt Date: 20180123
  Transmission Date: 20180509
  Serious: Yes (Hospitalization)
  Sender: FDA-Public Use
  Company Number: US-UNICHEM PHARMACEUTICALS (USA) INC-UCM201801-000010

PATIENT
  Age: 6 Month
  Sex: Female

DRUGS (3)
  1. LAMOTRIGINE. [Suspect]
     Active Substance: LAMOTRIGINE
     Indication: ACCIDENTAL OVERDOSE
     Dosage: 5 TO 10 PILLS
  2. PHENOBARBITAL. [Concomitant]
     Active Substance: PHENOBARBITAL
  3. ATIVAN [Concomitant]
     Active Substance: LORAZEPAM

REACTIONS (6)
  - Seizure [Recovered/Resolved]
  - Overdose [Recovered/Resolved]
  - Irregular breathing [Recovered/Resolved]
  - Hypotension [Recovered/Resolved]
  - Coma scale abnormal [Recovered/Resolved]
  - Pupil fixed [Recovered/Resolved]
